FAERS Safety Report 5750219-2 (Version None)
Quarter: 2008Q2

REPORT INFORMATION
  Report Type: 
  Country: None (occurrence: None)
  Receive Date: 20080527
  Receipt Date: 20080519
  Transmission Date: 20081010
  Serious: Yes (Other)
  Sender: FDA-Public Use
  Company Number: FI-AMGEN-US269140

PATIENT
  Sex: Male

DRUGS (2)
  1. ENBREL [Suspect]
     Indication: ANKYLOSING SPONDYLITIS
     Dosage: UNSPECIFIED
  2. HUMIRA [Suspect]
     Indication: ANKYLOSING SPONDYLITIS
     Dosage: UNSPECIFIED

REACTIONS (5)
  - ADJUSTMENT DISORDER [None]
  - AMYOTROPHIC LATERAL SCLEROSIS [None]
  - BALANCE DISORDER [None]
  - COORDINATION ABNORMAL [None]
  - SPEECH DISORDER [None]
